FAERS Safety Report 24975010 (Version 2)
Quarter: 2025Q4

REPORT INFORMATION
  Report Type: Spontaneous
  Country: US (occurrence: US)
  Receive Date: 20250217
  Receipt Date: 20251008
  Transmission Date: 20260118
  Serious: No
  Sender: BRISTOL-MYERS SQUIBB COMPANY
  Company Number: US-BRISTOL-MYERS SQUIBB COMPANY-2025-023399

PATIENT
  Age: 54 Year
  Sex: Female

DRUGS (2)
  1. ORENCIA [Suspect]
     Active Substance: ABATACEPT
     Indication: Rheumatoid arthritis
     Dates: start: 201602
  2. ORENCIA [Suspect]
     Active Substance: ABATACEPT
     Dates: start: 201602

REACTIONS (2)
  - Rheumatoid arthritis [Not Recovered/Not Resolved]
  - Product use issue [Unknown]
